FAERS Safety Report 20462287 (Version 1)
Quarter: 2022Q1

REPORT INFORMATION
  Report Type: Report from Study
  Country: BR (occurrence: BR)
  Receive Date: 20220211
  Receipt Date: 20220211
  Transmission Date: 20220423
  Serious: Yes (Death)
  Sender: FDA-Public Use
  Company Number: BR-JNJFOC-20220211651

PATIENT
  Sex: Male
  Weight: 111 kg

DRUGS (1)
  1. INFLIXIMAB [Suspect]
     Active Substance: INFLIXIMAB
     Indication: Crohn^s disease
     Route: 042
     Dates: start: 20191030, end: 202108

REACTIONS (4)
  - Gastrointestinal cancer metastatic [Fatal]
  - Abdominal sepsis [Fatal]
  - Abdominal operation [Fatal]
  - Product dose omission issue [Unknown]
